FAERS Safety Report 20967401 (Version 1)
Quarter: 2022Q2

REPORT INFORMATION
  Report Type: Spontaneous
  Country: US (occurrence: None)
  Receive Date: 20220616
  Receipt Date: 20220616
  Transmission Date: 20220721
  Serious: Yes (Disabling)
  Sender: FDA-Public Use
  Company Number: None

PATIENT
  Age: 42 Year
  Sex: Male
  Weight: 83.25 kg

DRUGS (8)
  1. DEXTROAMPHET SACCHARAT, AMPHET ASPARTATE, DEXTROAMPHET SULFATE AND AMP [Suspect]
     Active Substance: AMPHETAMINE ASPARTATE\AMPHETAMINE SULFATE\DEXTROAMPHETAMINE SACCHARATE\DEXTROAMPHETAMINE SULFATE
     Indication: Attention deficit hyperactivity disorder
     Dosage: OTHER QUANTITY : 60 TABLET(S);?FREQUENCY : TWICE A DAY;?
  2. Adderall XR 30 mg (once per day) [Concomitant]
  3. Adderall 30 (twice per day [Concomitant]
  4. Lexapro 20mg (once per day [Concomitant]
  5. Lexapro 20mg (once per day [Concomitant]
  6. PROTONIX [Concomitant]
     Active Substance: PANTOPRAZOLE SODIUM
  7. XANAX [Concomitant]
     Active Substance: ALPRAZOLAM
  8. DOXEPIN [Concomitant]
     Active Substance: DOXEPIN

REACTIONS (6)
  - Product substitution issue [None]
  - Rash [None]
  - Rash [None]
  - Dyspnoea [None]
  - Dysphagia [None]
  - Renal disorder [None]

NARRATIVE: CASE EVENT DATE: 20220531
